FAERS Safety Report 5014007-7 (Version None)
Quarter: 2006Q2

REPORT INFORMATION
  Report Type: 
  Country: None (occurrence: None)
  Receive Date: 20060414
  Receipt Date: 20060127
  Transmission Date: 20061013
  Serious: No
  Sender: FDA-Public Use
  Company Number: 2006SP000501

PATIENT
  Age: 41 Year
  Sex: Female
  Weight: 56.6996 kg

DRUGS (8)
  1. LUNESTA [Suspect]
     Indication: INSOMNIA
     Dosage: 3 MG;ORAL
     Route: 048
     Dates: start: 20060112, end: 20060126
  2. LYRICA [Concomitant]
  3. HYDROCODONE [Concomitant]
  4. FLEXERIL [Concomitant]
  5. ZANAFLEX [Concomitant]
  6. PROSED/DS [Concomitant]
  7. DOXEPIN [Concomitant]
  8. NEXIUM [Concomitant]

REACTIONS (2)
  - DYSGEUSIA [None]
  - MIDDLE INSOMNIA [None]
